FAERS Safety Report 6637429-7 (Version None)
Quarter: 2010Q1

REPORT INFORMATION
  Report Type: 
  Country: None (occurrence: None)
  Receive Date: 20100316
  Receipt Date: 20100308
  Transmission Date: 20100710
  Serious: Yes (Hospitalization)
  Sender: FDA-Public Use
  Company Number: US-GILEAD-2010-0026802

PATIENT
  Sex: Male
  Weight: 78.996 kg

DRUGS (9)
  1. LETAIRIS [Suspect]
     Indication: PULMONARY ARTERIAL HYPERTENSION
     Route: 048
     Dates: start: 20091210
  2. CELEXA [Suspect]
  3. ADCIRCA [Concomitant]
  4. COUMADIN [Concomitant]
  5. FUROSEMIDE [Concomitant]
  6. LANOXIN [Concomitant]
  7. CITALOPRAM HYDROBROMIDE [Concomitant]
  8. PRILOSEC [Concomitant]
  9. POTASSIUM CHLORIDE [Concomitant]

REACTIONS (5)
  - CHEST DISCOMFORT [None]
  - DYSPNOEA [None]
  - HEADACHE [None]
  - OEDEMA PERIPHERAL [None]
  - PNEUMONIA [None]
